FAERS Safety Report 4801693-7 (Version None)
Quarter: 2005Q4

REPORT INFORMATION
  Report Type: 
  Country: None (occurrence: None)
  Receive Date: 20051018
  Receipt Date: 20050815
  Transmission Date: 20060501
  Serious: Yes (Other)
  Sender: FDA-Public Use
  Company Number: GB-GLAXOSMITHKLINE-B0390676A

PATIENT
  Age: 25 Year
  Sex: Male
  Weight: 70 kg

DRUGS (6)
  1. FORTUM [Suspect]
     Indication: CYSTIC FIBROSIS
     Dosage: 3G THREE TIMES PER DAY
     Route: 042
     Dates: start: 20050809, end: 20050811
  2. TOBRAMYCIN [Concomitant]
     Dosage: 600MG PER DAY
     Route: 042
     Dates: start: 20050809, end: 20050823
  3. CREON [Concomitant]
     Route: 048
  4. MULTI-VITAMINS [Concomitant]
     Route: 048
  5. VITAMIN E [Concomitant]
     Route: 048
  6. FLUCLOXACILLIN [Concomitant]
     Dosage: 1G TWICE PER DAY
     Route: 048

REACTIONS (2)
  - HEPATIC ENZYME INCREASED [None]
  - INFLUENZA LIKE ILLNESS [None]
